FAERS Safety Report 4404482-0 (Version None)
Quarter: 2004Q3

REPORT INFORMATION
  Report Type: 
  Country: None (occurrence: None)
  Receive Date: 20040721
  Receipt Date: 20040721
  Transmission Date: 20050211
  Serious: Yes (Other)
  Sender: FDA-Public Use
  Company Number: None

PATIENT
  Age: 42 Year
  Sex: Female
  Weight: 77 kg

DRUGS (1)
  1. FILGRASTIM [Suspect]
     Indication: HAEMATOPOIETIC STEM CELL MOBILISATION
     Dosage: 600 MG Q 12H SC
     Route: 058
     Dates: start: 20040509, end: 20040514

REACTIONS (3)
  - BACK PAIN [None]
  - BONE PAIN [None]
  - CHEST PAIN [None]
